FAERS Safety Report 6999876-3 (Version None)
Quarter: 2010Q3

REPORT INFORMATION
  Report Type: 
  Country: None (occurrence: None)
  Receive Date: 20100920
  Receipt Date: 20100217
  Transmission Date: 20110219
  Serious: Yes (Other)
  Sender: FDA-Public Use
  Company Number: US-ASTRAZENECA-2008UW27564

PATIENT
  Age: 43 Year
  Sex: Male
  Weight: 120.2 kg

DRUGS (6)
  1. SEROQUEL [Suspect]
     Indication: NERVOUSNESS
     Route: 048
     Dates: start: 20030113, end: 20031112
  2. SEROQUEL [Suspect]
     Route: 048
     Dates: start: 20030113
  3. RISPERDAL [Concomitant]
  4. ZYPREXA [Concomitant]
  5. TRAZODONE HCL [Concomitant]
     Dates: start: 20030113
  6. EFFEXOR [Concomitant]
     Dates: start: 20030113

REACTIONS (3)
  - DIABETES MELLITUS [None]
  - PANCREATITIS [None]
  - TYPE 2 DIABETES MELLITUS [None]
